FAERS Safety Report 26182952 (Version 1)
Quarter: 2025Q4

REPORT INFORMATION
  Report Type: Report from Study
  Country: CA (occurrence: CA)
  Receive Date: 20251221
  Receipt Date: 20251221
  Transmission Date: 20260118
  Serious: Yes (Other)
  Sender: JOHNSON AND JOHNSON
  Company Number: CA-JNJFOC-20251228932

PATIENT
  Age: 48 Year
  Sex: Male

DRUGS (1)
  1. SIMPONI [Suspect]
     Active Substance: GOLIMUMAB
     Indication: Ankylosing spondylitis
     Route: 058

REACTIONS (1)
  - Diverticulitis [Unknown]
